FAERS Safety Report 13290056 (Version 1)
Quarter: 2017Q1

REPORT INFORMATION
  Report Type: Spontaneous
  Country: CN (occurrence: CN)
  Receive Date: 20170303
  Receipt Date: 20170303
  Transmission Date: 20170428
  Serious: Yes (Other)
  Sender: FDA-Public Use
  Company Number: CN-ROCHE-1899762

PATIENT
  Age: 16 Year
  Sex: Female
  Weight: 63 kg

DRUGS (2)
  1. ROCEPHIN [Suspect]
     Active Substance: CEFTRIAXONE SODIUM
     Route: 041
     Dates: start: 20160928, end: 20161005
  2. ROCEPHIN [Suspect]
     Active Substance: CEFTRIAXONE SODIUM
     Indication: LUNG INFECTION
     Route: 041
     Dates: start: 20160927, end: 20160927

REACTIONS (2)
  - Seizure [Recovered/Resolved]
  - Foaming at mouth [Recovered/Resolved]

NARRATIVE: CASE EVENT DATE: 20161006
